FAERS Safety Report 4682101-6 (Version None)
Quarter: 2005Q2

REPORT INFORMATION
  Report Type: 
  Country: None (occurrence: None)
  Receive Date: 20050602
  Receipt Date: 20050520
  Transmission Date: 20051028
  Serious: Yes (Other)
  Sender: FDA-Public Use
  Company Number: 2005068213

PATIENT
  Age: 61 Year
  Sex: Female

DRUGS (1)
  1. MINOXIDIL [Suspect]
     Dosage: TOPICAL
     Route: 061

REACTIONS (2)
  - DERMATITIS CONTACT [None]
  - LYMPHADENOPATHY [None]
